FAERS Safety Report 6411574-3 (Version None)
Quarter: 2009Q4

REPORT INFORMATION
  Report Type: 
  Country: None (occurrence: None)
  Receive Date: 20091023
  Receipt Date: 20091013
  Transmission Date: 20100525
  Serious: Yes (Hospitalization, Other)
  Sender: FDA-Public Use
  Company Number: US-AMGEN-STX368924

PATIENT
  Sex: Male

DRUGS (2)
  1. SENSIPAR [Suspect]
     Indication: HYPERPARATHYROIDISM SECONDARY
  2. UNSPECIFIED ANTIHYPERTENSIVE AGENT [Concomitant]

REACTIONS (3)
  - DYSPNOEA [None]
  - HYPERTENSION [None]
  - PHARYNGEAL OEDEMA [None]
